FAERS Safety Report 8923305 (Version 1)
Quarter: 2012Q4

REPORT INFORMATION
  Report Type: 
  Country: FR (occurrence: FR)
  Receive Date: 20121123
  Receipt Date: 20121123
  Transmission Date: 20130627
  Serious: Yes (Other)
  Sender: FDA-Public Use
  Company Number: FR-JNJFOC-20121110081

PATIENT
  Age: 27 Year
  Sex: Female

DRUGS (2)
  1. REMICADE [Suspect]
     Indication: CROHN^S DISEASE
     Route: 042
     Dates: start: 20121024
  2. REMICADE [Suspect]
     Indication: CROHN^S DISEASE
     Dosage: 5mg/kg , 1/cycle
     Route: 042
     Dates: start: 20121010

REACTIONS (1)
  - Polyarthritis [Recovered/Resolved]
